FAERS Safety Report 8432604-3 (Version None)
Quarter: 2012Q2

REPORT INFORMATION
  Report Type: 
  Country: None (occurrence: None)
  Receive Date: 20120613
  Receipt Date: 20120531
  Transmission Date: 20120825
  Serious: Yes (Hospitalization, Other)
  Sender: FDA-Public Use
  Company Number: AU-CELGENEUS-008-21880-10120010

PATIENT
  Sex: Male
  Weight: 82.5 kg

DRUGS (14)
  1. MICARDIS [Concomitant]
     Indication: HYPERTENSION
     Route: 048
     Dates: start: 20010101
  2. OMEPRAZOLE (PRISOLEC) [Concomitant]
     Route: 048
     Dates: start: 20011101
  3. URAL [Concomitant]
     Indication: PROPHYLAXIS URINARY TRACT INFECTION
     Route: 048
     Dates: start: 20101104, end: 20101104
  4. DEXAMETHASONE [Suspect]
     Indication: MULTIPLE MYELOMA
     Route: 065
     Dates: start: 20100514
  5. COLGOUT [Concomitant]
     Indication: GOUT
     Route: 048
     Dates: start: 20100930
  6. ASPIRIN [Concomitant]
     Route: 048
     Dates: start: 20101112
  7. ACETAMINOPHEN [Concomitant]
     Indication: PAIN PROPHYLAXIS
     Route: 041
     Dates: start: 20101102, end: 20101102
  8. NOROXIN [Concomitant]
     Indication: PROPHYLAXIS URINARY TRACT INFECTION
     Route: 048
     Dates: start: 20101102, end: 20101102
  9. BACTRIM [Concomitant]
     Indication: PROPHYLAXIS
     Route: 048
     Dates: start: 20100501
  10. CALCIUM CARBONATE [Concomitant]
     Indication: HYPOCALCAEMIA
     Route: 048
     Dates: start: 20100930
  11. WARFARIN SODIUM [Concomitant]
     Route: 048
     Dates: start: 20100201, end: 20100907
  12. REVLIMID [Suspect]
     Indication: MULTIPLE MYELOMA
     Dosage: 15 MILLIGRAM
     Route: 048
     Dates: start: 20100514
  13. LIPITOR [Concomitant]
     Indication: HYPERLIPIDAEMIA
     Route: 048
     Dates: start: 20010101
  14. ASPIRIN [Concomitant]
     Route: 048
     Dates: start: 20100908, end: 20101025

REACTIONS (1)
  - PROSTATE CANCER [None]
